FAERS Safety Report 9319343 (Version 1)
Quarter: 2013Q2

REPORT INFORMATION
  Report Type: Spontaneous
  Country: US (occurrence: None)
  Receive Date: 20130529
  Receipt Date: 20130529
  Transmission Date: 20140414
  Serious: Yes (Other)
  Sender: FDA-Public Use
  Company Number: None

PATIENT
  Age: 45 Year
  Sex: Female
  Weight: 73.48 kg

DRUGS (2)
  1. SEROQUEL [Suspect]
     Dosage: 1/2 TAB, PO, TID
     Route: 048
  2. SEROQUEL [Suspect]
     Dosage: 1/2 TAB, PO, TID
     Route: 048

REACTIONS (2)
  - Restlessness [None]
  - Formication [None]
